FAERS Safety Report 24692800 (Version 3)
Quarter: 2024Q4

REPORT INFORMATION
  Report Type: Spontaneous
  Country: IT (occurrence: IT)
  Receive Date: 20241203
  Receipt Date: 20241219
  Transmission Date: 20250114
  Serious: Yes (Hospitalization, Other)
  Sender: MERCK
  Company Number: IT-009507513-2411ITA012340

PATIENT
  Age: 76 Year
  Sex: Female
  Weight: 62 kg

DRUGS (7)
  1. PEMBROLIZUMAB [Suspect]
     Active Substance: PEMBROLIZUMAB
     Dosage: UNK
     Dates: start: 202409
  2. PEMBROLIZUMAB [Suspect]
     Active Substance: PEMBROLIZUMAB
     Dosage: 200 MILLIGRAM, Q3W
     Route: 042
     Dates: start: 20241002, end: 20241002
  3. PEMBROLIZUMAB [Suspect]
     Active Substance: PEMBROLIZUMAB
     Dosage: 200 MILLIGRAM, Q3W
     Route: 042
     Dates: start: 20241023, end: 20241023
  4. FENTANYL [Concomitant]
     Active Substance: FENTANYL
     Indication: Pain
     Dosage: 12 MCG/72H||Q3D
     Route: 062
     Dates: start: 202405
  5. LANSOPRAZOLE [Concomitant]
     Active Substance: LANSOPRAZOLE
     Indication: Prophylaxis
     Dosage: 30 MG/DAY||QD
     Route: 048
     Dates: start: 202404
  6. ARIXTRA [Concomitant]
     Active Substance: FONDAPARINUX SODIUM
     Dosage: 2,50 (UNITS NOT REPORTED)/DAY||QD
     Route: 058
     Dates: start: 202407
  7. NALDEMEDINE TOSYLATE [Concomitant]
     Active Substance: NALDEMEDINE TOSYLATE
     Indication: Constipation
     Dosage: 1 TABLET/DAY||QD
     Route: 048
     Dates: start: 202406

REACTIONS (6)
  - Hepatitis cholestatic [Recovered/Resolved]
  - Cholangitis [Unknown]
  - Pancreatic disorder [Recovered/Resolved]
  - Drug-induced liver injury [Unknown]
  - Cholecystitis [Recovered/Resolved]
  - Herpes zoster [Unknown]

NARRATIVE: CASE EVENT DATE: 20241101
